FAERS Safety Report 10243683 (Version 1)
Quarter: 2014Q2

REPORT INFORMATION
  Report Type: Spontaneous
  Country: US (occurrence: None)
  Receive Date: 20140616
  Receipt Date: 20140616
  Transmission Date: 20141212
  Serious: Yes (Hospitalization)
  Sender: FDA-Public Use
  Company Number: UNT-2014-000868

PATIENT
  Age: 51 Year
  Sex: Female
  Weight: 74.8 kg

DRUGS (2)
  1. REMODULIN [Suspect]
     Indication: COR PULMONALE CHRONIC
     Dosage: 0.050 ?G/KG/MIN, CONTINUING, SUBCUTANEOUS
     Route: 058
     Dates: start: 20121116
  2. ADCIRCA (TADALAFIL) [Concomitant]

REACTIONS (1)
  - Cardiac failure congestive [None]
